FAERS Safety Report 6908247-7 (Version None)
Quarter: 2010Q3

REPORT INFORMATION
  Report Type: 
  Country: None (occurrence: None)
  Receive Date: 20100803
  Receipt Date: 20100726
  Transmission Date: 20110219
  Serious: Yes (Other)
  Sender: FDA-Public Use
  Company Number: 016121

PATIENT
  Age: 35 Year
  Sex: Male

DRUGS (2)
  1. LEVETIRACETAM [Suspect]
     Indication: PARTIAL SEIZURES
     Dosage: (500 MG BID ORAL), (1500 MG BID ORAL)
     Route: 048
  2. UNKNOWN [Suspect]
     Indication: HIV TEST POSITIVE

REACTIONS (4)
  - HAEMOGLOBIN DECREASED [None]
  - PETECHIAE [None]
  - THROMBOCYTOPENIA [None]
  - WHITE BLOOD CELL COUNT DECREASED [None]
